FAERS Safety Report 8574338-0 (Version None)
Quarter: 2012Q3

REPORT INFORMATION
  Report Type: 
  Country: None (occurrence: None)
  Receive Date: 20120806
  Receipt Date: 20120731
  Transmission Date: 20120928
  Serious: Yes (Other)
  Sender: FDA-Public Use
  Company Number: CA-ABBOTT-12P-028-0963118-00

PATIENT
  Sex: Male
  Weight: 93.07 kg

DRUGS (1)
  1. LUPRON DEPOT [Suspect]
     Indication: PROSTATE CANCER
     Dosage: 3 MONTHS DEPOT
     Route: 030
     Dates: start: 20071114

REACTIONS (1)
  - AORTIC STENT INSERTION [None]
